APPROVED DRUG PRODUCT: DOXYCYCLINE HYCLATE
Active Ingredient: DOXYCYCLINE HYCLATE
Strength: EQ 150MG BASE
Dosage Form/Route: TABLET;ORAL
Application: A208765 | Product #002 | TE Code: AB
Applicant: DR REDDYS LABORATORIES SA
Approved: Jun 14, 2017 | RLD: No | RS: No | Type: RX